FAERS Safety Report 8529742-3 (Version None)
Quarter: 2012Q2

REPORT INFORMATION
  Report Type: 
  Country: None (occurrence: None)
  Receive Date: 20120410
  Receipt Date: 20120103
  Transmission Date: 20120825
  Serious: Yes (Other)
  Sender: FDA-Public Use
  Company Number: AUR-APL-2011-05649

PATIENT
  Age: 38 Year
  Sex: Female

DRUGS (10)
  1. LEXAPRO [Suspect]
  2. ALLEGRA-D (ALLEGRA-D) [Concomitant]
  3. PENICILLIN [Suspect]
     Indication: PRODUCT USED FOR UNKNOWN INDICATION
     Dosage: UNKNOWN
  4. MOBIC [Suspect]
     Indication: PRODUCT USED FOR UNKNOWN INDICATION
     Dosage: 1 D, ORAL
     Route: 048
  5. AMOXICILLIN [Concomitant]
  6. NASONEX [Concomitant]
  7. LISINOPRIL [Suspect]
     Indication: PRODUCT USED FOR UNKNOWN INDICATION
     Dosage: UNKNOWN
  8. PRINZIDE [Suspect]
     Indication: HYPERTENSION
     Dosage: 1 D, ORAL
     Route: 048
     Dates: start: 20030719
  9. BENADRYL [Suspect]
  10. CELEBREX [Concomitant]

REACTIONS (4)
  - DRUG HYPERSENSITIVITY [None]
  - ANGIOEDEMA [None]
  - LIP SWELLING [None]
  - SWOLLEN TONGUE [None]
